FAERS Safety Report 4698697-4 (Version None)
Quarter: 2005Q2

REPORT INFORMATION
  Report Type: 
  Country: None (occurrence: None)
  Receive Date: 20050622
  Receipt Date: 20050613
  Transmission Date: 20051028
  Serious: Yes (Other)
  Sender: FDA-Public Use
  Company Number: HQWYE468115JUN05

PATIENT
  Sex: Female

DRUGS (1)
  1. PREMARIN [Suspect]
     Dosage: ORAL
     Route: 048
     Dates: start: 19780101, end: 20020801

REACTIONS (5)
  - CHEST PAIN [None]
  - DYSPNOEA [None]
  - OVARIAN EPITHELIAL CANCER METASTATIC [None]
  - OVARIAN EPITHELIAL CANCER RECURRENT [None]
  - OVARIAN EPITHELIAL CANCER STAGE IV [None]
